FAERS Safety Report 9613211 (Version 2)
Quarter: 2013Q4

REPORT INFORMATION
  Report Type: Report from Study
  Country: FR (occurrence: FR)
  Receive Date: 20131010
  Receipt Date: 20131017
  Transmission Date: 20140711
  Serious: No
  Sender: FDA-Public Use
  Company Number: PHHY2013FR113394

PATIENT
  Age: 73 Year
  Sex: Female

DRUGS (4)
  1. ACLASTA/ZOLEDRONATE [Suspect]
     Indication: OSTEOPOROSIS
     Dosage: UNK
     Route: 042
     Dates: start: 201112
  2. COAPROVEL [Concomitant]
     Dosage: UNK
     Dates: start: 1980
  3. SIMVASTATINE [Concomitant]
     Dosage: UNK
     Dates: start: 1980
  4. DEDROGYL [Concomitant]
     Dosage: UNK
     Dates: start: 2011

REACTIONS (1)
  - Humerus fracture [Unknown]
